FAERS Safety Report 5504789-X (Version None)
Quarter: 2007Q4

REPORT INFORMATION
  Report Type: 
  Country: None (occurrence: None)
  Receive Date: 20071031
  Receipt Date: 20071031
  Transmission Date: 20080405
  Serious: Yes (Hospitalization)
  Sender: FDA-Public Use
  Company Number: None

PATIENT
  Age: 62 Year
  Sex: Female
  Weight: 70.3075 kg

DRUGS (4)
  1. METOPROLOL SUCCINATE [Suspect]
     Indication: CORONARY ARTERY DISEASE
     Dosage: 200MG PO
     Route: 048
     Dates: start: 20070919
  2. METOPROLOL SUCCINATE [Suspect]
     Indication: TACHYCARDIA
     Dosage: 200MG PO
     Route: 048
     Dates: start: 20070919
  3. METOPROLOL SUCCINATE [Suspect]
     Indication: CORONARY ARTERY DISEASE
     Dosage: 200MG PO
     Route: 048
     Dates: start: 20070920
  4. METOPROLOL SUCCINATE [Suspect]
     Indication: TACHYCARDIA
     Dosage: 200MG PO
     Route: 048
     Dates: start: 20070920

REACTIONS (4)
  - BURNING SENSATION [None]
  - FLUSHING [None]
  - HYPERHIDROSIS [None]
  - PHARMACEUTICAL PRODUCT COMPLAINT [None]
